FAERS Safety Report 23844403 (Version 1)
Quarter: 2024Q2

REPORT INFORMATION
  Report Type: Spontaneous
  Country: CA (occurrence: CA)
  Receive Date: 20240510
  Receipt Date: 20240510
  Transmission Date: 20240716
  Serious: Yes (Hospitalization, Other)
  Sender: FDA-Public Use
  Company Number: CA-SANDOZ-SDZ2024CA047268

PATIENT
  Age: 39 Year
  Sex: Female

DRUGS (2)
  1. ARSENIC TRIOXIDE [Suspect]
     Active Substance: ARSENIC TRIOXIDE
     Indication: Acute promyelocytic leukaemia
     Dosage: 0.15 MG/KG
     Route: 065
  2. TRETINOIN [Suspect]
     Active Substance: TRETINOIN
     Indication: Acute promyelocytic leukaemia
     Dosage: 45 MG
     Route: 065

REACTIONS (8)
  - Cholestasis [Unknown]
  - Cholestasis [Unknown]
  - Febrile neutropenia [Unknown]
  - Gestational diabetes [Unknown]
  - Intracranial pressure increased [Unknown]
  - Intracranial pressure increased [Unknown]
  - Mucosal inflammation [Unknown]
  - Mucosal inflammation [Unknown]
